FAERS Safety Report 16682278 (Version 2)
Quarter: 2019Q3

REPORT INFORMATION
  Report Type: Spontaneous
  Country: US (occurrence: US)
  Receive Date: 20190808
  Receipt Date: 20190827
  Transmission Date: 20191004
  Serious: Yes (Other)
  Sender: FDA-Public Use
  Company Number: US-PFIZER INC-2019335487

PATIENT
  Age: 57 Year
  Sex: Female
  Weight: 83.9 kg

DRUGS (2)
  1. METOPROLOL TARTRATE. [Suspect]
     Active Substance: METOPROLOL TARTRATE
     Dosage: 50 MG, 2X/DAY
  2. METOPROLOL TARTRATE. [Suspect]
     Active Substance: METOPROLOL TARTRATE
     Indication: MYOCARDIAL INFARCTION
     Dosage: 25 MG, 2X/DAY
     Dates: start: 2013

REACTIONS (8)
  - Insomnia [Unknown]
  - Impaired work ability [Unknown]
  - Psoriasis [Not Recovered/Not Resolved]
  - Disturbance in attention [Unknown]
  - Social avoidant behaviour [Unknown]
  - Depression [Unknown]
  - Mobility decreased [Unknown]
  - Weight increased [Unknown]

NARRATIVE: CASE EVENT DATE: 201312
